FAERS Safety Report 4292610-X (Version None)
Quarter: 2004Q1

REPORT INFORMATION
  Report Type: 
  Country: None (occurrence: None)
  Receive Date: 20040126
  Receipt Date: 20031110
  Transmission Date: 20041129
  Serious: Yes (Other)
  Sender: FDA-Public Use
  Company Number: USA031050156

PATIENT
  Age: 79 Year
  Sex: Female

DRUGS (14)
  1. EVISTA [Suspect]
     Indication: OSTEOPOROSIS
     Dosage: 60 MG/DAY
     Dates: start: 20010904
  2. FORTEO [Suspect]
     Indication: OSTEOPOROSIS
     Dates: start: 20031016
  3. ZOLOFT [Concomitant]
  4. NORVASC [Concomitant]
  5. BEXTRA [Concomitant]
  6. SEROQUEL [Concomitant]
  7. SONAAT (ZALEPLON) [Concomitant]
  8. ULTRACET [Concomitant]
  9. FOSAMAX [Concomitant]
  10. AMARYL [Concomitant]
  11. ARICEPT [Concomitant]
  12. COZAAR [Concomitant]
  13. TYLENOL W/ CODEINE [Concomitant]
  14. MIACALCIN [Concomitant]

REACTIONS (3)
  - FALL [None]
  - FRACTURE [None]
  - HIP FRACTURE [None]
